FAERS Safety Report 4366080-7 (Version None)
Quarter: 2004Q2

REPORT INFORMATION
  Report Type: 
  Country: None (occurrence: None)
  Receive Date: 20040524
  Receipt Date: 20040517
  Transmission Date: 20050107
  Serious: Yes (Hospitalization)
  Sender: FDA-Public Use
  Company Number: 2004-05-1148

PATIENT
  Age: 40 Year
  Sex: Male
  Weight: 58 kg

DRUGS (2)
  1. AERIUS (DESLORATADINE) TABLETS 'LIKE CLARINEX' [Suspect]
     Indication: PRURITUS
     Dosage: 5 MG ORAL
     Route: 048
     Dates: start: 20040407, end: 20040408
  2. BECOMBION [Suspect]
     Indication: VITAMIN SUPPLEMENTATION
     Dosage: 3 TIMES DAILY ORAL
     Route: 048
     Dates: start: 20040407

REACTIONS (4)
  - DIARRHOEA [None]
  - HEADACHE [None]
  - NAUSEA [None]
  - VOMITING [None]
